FAERS Safety Report 21481767 (Version 7)
Quarter: 2024Q3

REPORT INFORMATION
  Report Type: Report from Study
  Country: DE (occurrence: DE)
  Receive Date: 20221020
  Receipt Date: 20240923
  Transmission Date: 20241017
  Serious: No
  Sender: ROCHE
  Company Number: DE-ROCHE-2829644

PATIENT
  Age: 30 Year
  Sex: Female

DRUGS (4)
  1. OCRELIZUMAB [Suspect]
     Active Substance: OCRELIZUMAB
     Indication: Relapsing-remitting multiple sclerosis
     Dosage: SECOND INITIAL DOSE 300 MG ON 10/NOV/2020
     Route: 042
     Dates: start: 20201013
  2. OCRELIZUMAB [Suspect]
     Active Substance: OCRELIZUMAB
     Dosage: SUBSEQUENT DOSE (300 MG) ON AN UNSPECIFIED DATE IN MAY/2022.
     Route: 042
     Dates: start: 202204
  3. OCRELIZUMAB [Suspect]
     Active Substance: OCRELIZUMAB
     Route: 042
     Dates: start: 20230130
  4. VITAMIN D3 [Concomitant]
     Active Substance: CHOLECALCIFEROL

REACTIONS (15)
  - Otitis media [Recovered/Resolved]
  - Maternal exposure before pregnancy [Unknown]
  - Lymphocyte count decreased [Not Recovered/Not Resolved]
  - COVID-19 [Recovered/Resolved]
  - Upper respiratory tract infection [Recovered/Resolved]
  - Vomiting [Recovered/Resolved]
  - Diarrhoea [Recovered/Resolved]
  - Fatigue [Recovered/Resolved]
  - Sinusitis [Recovered/Resolved]
  - Gait disturbance [Recovered/Resolved]
  - Visual impairment [Recovered/Resolved]
  - Influenza [Recovered/Resolved]
  - Nasopharyngitis [Recovered/Resolved]
  - Muscular weakness [Recovered/Resolved]
  - Off label use [Unknown]

NARRATIVE: CASE EVENT DATE: 20201013
